FAERS Safety Report 15332798 (Version 2)
Quarter: 2018Q3

REPORT INFORMATION
  Report Type: Report from Study
  Country: PL (occurrence: PL)
  Receive Date: 20180830
  Receipt Date: 20180913
  Transmission Date: 20181010
  Serious: Yes (Other)
  Sender: FDA-Public Use
  Company Number: PL-REGENERON PHARMACEUTICALS, INC.-2018-35219

PATIENT

DRUGS (1)
  1. EYLEA [Suspect]
     Active Substance: AFLIBERCEPT
     Indication: NEOVASCULAR AGE-RELATED MACULAR DEGENERATION
     Dosage: 2 MG, UNK, LEFT EYE (OS), RECEIVED TOTAL OF 4 INJECTIONS
     Route: 031
     Dates: start: 20171109

REACTIONS (3)
  - Drug ineffective [Unknown]
  - Blindness unilateral [Unknown]
  - Neovascular age-related macular degeneration [Unknown]
